FAERS Safety Report 17960962 (Version 1)
Quarter: 2020Q2

REPORT INFORMATION
  Report Type: Spontaneous
  Country: US (occurrence: US)
  Receive Date: 20200629
  Receipt Date: 20200629
  Transmission Date: 20200714
  Serious: No
  Sender: FDA-Public Use
  Company Number: US-ROCHE-2581101

PATIENT
  Sex: Female
  Weight: 64.47 kg

DRUGS (1)
  1. XELODA [Suspect]
     Active Substance: CAPECITABINE
     Indication: PANCREATIC CARCINOMA
     Dosage: 5 OR 7 DAYS ON THEN OFF 5 OR 7 DAYS ;ONGOING: NO
     Route: 048
     Dates: start: 201903, end: 201908

REACTIONS (2)
  - Fatigue [Recovered/Resolved]
  - Dehydration [Recovered/Resolved]
